FAERS Safety Report 15965616 (Version 1)
Quarter: 2019Q1

REPORT INFORMATION
  Report Type: Spontaneous
  Country: US (occurrence: US)
  Receive Date: 20190123
  Receipt Date: 20190123
  Transmission Date: 20190418
  Serious: No
  Sender: FDA-Public Use
  Company Number: None

PATIENT
  Age: 53 Year
  Sex: Female
  Weight: 60.33 kg

DRUGS (1)
  1. CIMZIA [Suspect]
     Active Substance: CERTOLIZUMAB PEGOL
     Indication: PSORIASIS
     Dosage: JECT 400MG (2 VIALS) SUBCUTANEOUSLY AT WEEKS 0, 2 AND?AS DIRECTED   REFRIGERATE! DO NOT FREEZE ?
     Route: 058
     Dates: start: 201804

REACTIONS (3)
  - Sinusitis [None]
  - Rash [None]
  - Influenza [None]
